FAERS Safety Report 9224333 (Version 1)
Quarter: 2013Q2

REPORT INFORMATION
  Report Type: Spontaneous
  Country: US (occurrence: US)
  Receive Date: 20130411
  Receipt Date: 20130411
  Transmission Date: 20140414
  Serious: Yes (Hospitalization)
  Sender: FDA-Public Use
  Company Number: PHEH2012US008886

PATIENT
  Sex: Female
  Weight: 102.4 kg

DRUGS (7)
  1. EXTAVIA [Suspect]
     Indication: MULTIPLE SCLEROSIS
     Dosage: 0.25 MG, QOD
     Route: 058
     Dates: start: 20111104
  2. BACLOFEN [Concomitant]
     Indication: MULTIPLE SCLEROSIS
     Dosage: 10 MG, TID
  3. MOTRIN [Concomitant]
     Dosage: 200 MG, PRN
     Route: 048
  4. BENADRYL [Concomitant]
     Dosage: 25 MG, PRN
  5. ZANTAC [Concomitant]
     Dosage: 150 MG, BID
  6. COLACE [Concomitant]
     Dosage: 100 MG, PRN
  7. ALEVE [Concomitant]
     Dosage: 220 MG, PRN
     Route: 048

REACTIONS (10)
  - Scratch [Recovered/Resolved]
  - Gait disturbance [Unknown]
  - Back pain [Recovering/Resolving]
  - Pain in extremity [Recovering/Resolving]
  - Influenza [Recovered/Resolved]
  - Nasopharyngitis [Not Recovered/Not Resolved]
  - Chest pain [Recovering/Resolving]
  - Injection site pain [Not Recovered/Not Resolved]
  - Injection site erythema [Not Recovered/Not Resolved]
  - Wrong technique in drug usage process [Not Recovered/Not Resolved]
